FAERS Safety Report 17820469 (Version 3)
Quarter: 2020Q2

REPORT INFORMATION
  Report Type: Spontaneous
  Country: BR (occurrence: BR)
  Receive Date: 20200525
  Receipt Date: 20200629
  Transmission Date: 20200714
  Serious: Yes (Life-Threatening, Other)
  Sender: FDA-Public Use
  Company Number: BR-GLAXOSMITHKLINE-BR2020AMR084040

PATIENT
  Sex: Female

DRUGS (4)
  1. RINOSORO [SODIUM CHLORIDE] [Suspect]
     Active Substance: SODIUM CHLORIDE
     Indication: PRODUCT USED FOR UNKNOWN INDICATION
     Dosage: UNK
  2. AVAMYS [Suspect]
     Active Substance: FLUTICASONE FUROATE
     Indication: PRODUCT USED FOR UNKNOWN INDICATION
     Dosage: UNK
  3. SERETIDE [Suspect]
     Active Substance: FLUTICASONE PROPIONATE\SALMETEROL XINAFOATE
     Indication: ASTHMA
     Dosage: 1 PUFF(S), BID, 50/250MCG 60D
  4. SERETIDE [Suspect]
     Active Substance: FLUTICASONE PROPIONATE\SALMETEROL XINAFOATE
     Indication: DYSPNOEA

REACTIONS (11)
  - Drug hypersensitivity [Unknown]
  - Urinary tract infection [Unknown]
  - Asthmatic crisis [Unknown]
  - Treatment noncompliance [Unknown]
  - Influenza [Recovering/Resolving]
  - Malaise [Unknown]
  - Product complaint [Unknown]
  - Dyspnoea [Unknown]
  - Hypersensitivity [Unknown]
  - Lactose intolerance [Unknown]
  - Tooth fracture [Unknown]
